FAERS Safety Report 8115043-4 (Version None)
Quarter: 2012Q1

REPORT INFORMATION
  Report Type: 
  Country: None (occurrence: None)
  Receive Date: 20120206
  Receipt Date: 20120131
  Transmission Date: 20120608
  Serious: Yes (Life-Threatening, Hospitalization)
  Sender: FDA-Public Use
  Company Number: IT-CUBIST-2012S1000060

PATIENT
  Age: 57 Year
  Sex: Male

DRUGS (4)
  1. TIZANIDINE HCL [Concomitant]
     Indication: PRODUCT USED FOR UNKNOWN INDICATION
     Dosage: DOSE UNIT:U UNKNOWN
     Route: 065
  2. RAMIPRIL [Concomitant]
     Indication: PRODUCT USED FOR UNKNOWN INDICATION
     Dosage: DOSE UNIT:U UNKNOWN
     Route: 065
  3. CUBICIN [Suspect]
     Indication: OSTEOMYELITIS CHRONIC
     Route: 042
     Dates: start: 20110901
  4. NIMESULIDE [Concomitant]
     Indication: PRODUCT USED FOR UNKNOWN INDICATION
     Dosage: DOSE UNIT:U UNKNOWN
     Route: 065

REACTIONS (3)
  - RENAL FAILURE ACUTE [None]
  - NEPHRITIC SYNDROME [None]
  - OSTEOMYELITIS [None]
